FAERS Safety Report 4627048-6 (Version None)
Quarter: 2005Q1

REPORT INFORMATION
  Report Type: 
  Country: None (occurrence: None)
  Receive Date: 20050331
  Receipt Date: 20050314
  Transmission Date: 20050727
  Serious: Yes (Other)
  Sender: FDA-Public Use
  Company Number: CAR_0005_2005

PATIENT
  Age: 74 Year
  Sex: Female
  Weight: 77.1115 kg

DRUGS (5)
  1. ACYCLOVIR [Suspect]
     Indication: HERPES ZOSTER
     Dosage: 800 MG TID PO
     Route: 048
     Dates: start: 20040819, end: 20040821
  2. NORVASC [Concomitant]
  3. PREDNISONE [Concomitant]
  4. THEOPHYLLINE [Concomitant]
  5. ALBUTEROL [Concomitant]

REACTIONS (1)
  - ANAPHYLACTIC REACTION [None]
